APPROVED DRUG PRODUCT: AVC
Active Ingredient: SULFANILAMIDE
Strength: 15% **Federal Register determination that product was not discontinued or withdrawn for safety or effectiveness reasons**
Dosage Form/Route: CREAM;VAGINAL
Application: N006530 | Product #003
Applicant: PHARMOBEDIENT CONSULTING LLC
Approved: Jan 27, 1987 | RLD: Yes | RS: No | Type: DISCN